FAERS Safety Report 7184095-0 (Version None)
Quarter: 2010Q4

REPORT INFORMATION
  Report Type: 
  Country: None (occurrence: None)
  Receive Date: 20101222
  Receipt Date: 20101214
  Transmission Date: 20110411
  Serious: Yes (Hospitalization)
  Sender: FDA-Public Use
  Company Number: PHHO2010US12222

PATIENT
  Sex: Male
  Weight: 76 kg

DRUGS (3)
  1. CERTICAN [Suspect]
     Indication: RENAL TRANSPLANT
     Dosage: 1.5 MG, UNK
     Route: 048
     Dates: start: 20100603
  2. PROGRAF [Suspect]
     Indication: RENAL TRANSPLANT
     Dosage: UNK
     Dates: start: 20100603, end: 20100901
  3. CYCLOSPORINE [Concomitant]
     Indication: RENAL TRANSPLANT
     Dosage: UNK
     Dates: start: 20100901

REACTIONS (9)
  - BLOOD CREATININE INCREASED [None]
  - CEREBRAL ATROPHY [None]
  - CONFUSIONAL STATE [None]
  - DEHYDRATION [None]
  - MENTAL STATUS CHANGES [None]
  - PARACENTESIS [None]
  - PERINEPHRIC COLLECTION [None]
  - RENAL FAILURE ACUTE [None]
  - URINARY TRACT OBSTRUCTION [None]
